FAERS Safety Report 5049677-0 (Version None)
Quarter: 2006Q3

REPORT INFORMATION
  Report Type: 
  Country: None (occurrence: None)
  Receive Date: 20060707
  Receipt Date: 20060612
  Transmission Date: 20061208
  Serious: Yes (Death, Hospitalization)
  Sender: FDA-Public Use
  Company Number: COT_0620_2006

PATIENT
  Age: 76 Year
  Sex: Female
  Weight: 59.8748 kg

DRUGS (17)
  1. VENTAVIS [Suspect]
     Indication: PULMONARY HYPERTENSION
     Dosage: 5 MCG 6TO9X/DAY IH
     Route: 055
     Dates: start: 20050823
  2. ATARAX [Concomitant]
  3. SPIRONOLACTONE [Concomitant]
  4. SPIRIVA [Concomitant]
  5. TIMOLOL MALEATE [Concomitant]
  6. MULTIVITAMIN [Concomitant]
  7. VITAMIN B COMPLEX CAP [Concomitant]
  8. FLOVENT [Concomitant]
  9. LASIX [Concomitant]
  10. ASPIRIN [Concomitant]
  11. LIPITOR [Concomitant]
  12. LUMIGAN [Concomitant]
  13. DIGOXIN [Concomitant]
  14. OXYGEN [Concomitant]
  15. ALBUTEROL SPIROS [Concomitant]
  16. LEVOXYL [Concomitant]
  17. AMBIEN [Concomitant]

REACTIONS (9)
  - ANIMAL SCRATCH [None]
  - CELLULITIS [None]
  - CHRONIC OBSTRUCTIVE PULMONARY DISEASE [None]
  - COR PULMONALE [None]
  - ELECTROCARDIOGRAM T WAVE ABNORMAL [None]
  - INSOMNIA [None]
  - NAUSEA [None]
  - SUDDEN CARDIAC DEATH [None]
  - VOMITING [None]
